FAERS Safety Report 6665305-2 (Version None)
Quarter: 2010Q2

REPORT INFORMATION
  Report Type: 
  Country: None (occurrence: None)
  Receive Date: 20100402
  Receipt Date: 20100323
  Transmission Date: 20101027
  Serious: Yes (Other)
  Sender: FDA-Public Use
  Company Number: CA-JNJFOC-20100307571

PATIENT
  Sex: Female
  Weight: 74 kg

DRUGS (1)
  1. REMICADE [Suspect]
     Indication: RHEUMATOID ARTHRITIS
     Route: 042

REACTIONS (5)
  - DIZZINESS [None]
  - HEARING IMPAIRED [None]
  - HYPOAESTHESIA FACIAL [None]
  - NAUSEA [None]
  - PARAESTHESIA [None]
